FAERS Safety Report 12964916 (Version 1)
Quarter: 2016Q4

REPORT INFORMATION
  Report Type: Spontaneous
  Country: US (occurrence: US)
  Receive Date: 20161122
  Receipt Date: 20161122
  Transmission Date: 20170207
  Serious: Yes (Other)
  Sender: FDA-Public Use
  Company Number: US-PFIZER INC-2016537373

PATIENT
  Age: 61 Year
  Sex: Male
  Weight: 61 kg

DRUGS (3)
  1. DIAZEPAM. [Concomitant]
     Active Substance: DIAZEPAM
     Indication: MUSCLE RELAXANT THERAPY
     Dosage: 15 MG, DAILY (5MG TABLETS - ONE IN THE MORNING AND TWO IN EVENING)
     Route: 048
  2. LYRICA [Suspect]
     Active Substance: PREGABALIN
     Indication: NEURALGIA
     Dosage: 225 MG, DAILY (75MG CAPSULES - ONE IN THE MORNING AND TWO AT NIGHT)
     Route: 048
     Dates: start: 2007
  3. IBUPROFEN. [Concomitant]
     Active Substance: IBUPROFEN
     Indication: PAIN
     Dosage: 400 TO 1000MG A DAY
     Dates: end: 201607

REACTIONS (2)
  - Carcinoid tumour [Unknown]
  - Neoplasm malignant [Unknown]
